FAERS Safety Report 7951650-7 (Version None)
Quarter: 2011Q4

REPORT INFORMATION
  Report Type: 
  Country: None (occurrence: None)
  Receive Date: 20111201
  Receipt Date: 20111122
  Transmission Date: 20120403
  Serious: Yes (Death)
  Sender: FDA-Public Use
  Company Number: DE-CELGENEUS-062-21880-11072120

PATIENT
  Age: 78 Year
  Sex: Female

DRUGS (18)
  1. DEXAMETHASONE [Concomitant]
     Dosage: 8 MILLIGRAM
     Route: 065
     Dates: start: 20110301
  2. AMITRIPTYLINE HCL [Concomitant]
  3. POLYETHYLENE GLYCOL [Concomitant]
     Dosage: 3 DOSAGE FORMS
     Route: 065
  4. FRAXIPARIN [Concomitant]
     Dosage: .3 MILLILITER
     Route: 058
  5. REVLIMID [Suspect]
     Dosage: 25 MILLIGRAM
     Route: 048
     Dates: start: 20110302, end: 20110517
  6. DURAGESIC-100 [Concomitant]
     Route: 065
  7. POLYETHYLENE GLYCOL [Concomitant]
  8. TILIDINE [Concomitant]
     Route: 065
  9. MORPHINE [Concomitant]
     Route: 058
  10. ACETYLSALICYLIC ACID SRT [Concomitant]
     Dosage: 100 MILLIGRAM
     Route: 065
  11. LEVOTHYROXINE SODIUM [Concomitant]
     Dosage: 125 MICROGRAM
     Route: 065
  12. AMITRIPTYLINE HCL [Concomitant]
     Dosage: 50 MILLIGRAM
     Route: 065
  13. NOVALGIN [Concomitant]
     Route: 065
  14. PANTOPRAZOLE SODIUM [Concomitant]
     Dosage: 40 MILLIGRAM
     Route: 065
  15. FRAXIPARIN [Concomitant]
  16. MORPHINE [Concomitant]
  17. NOVAMINSULFON [Concomitant]
     Route: 065
  18. LYRICA [Concomitant]
     Dosage: 150 MILLIGRAM
     Route: 065

REACTIONS (1)
  - MULTIPLE MYELOMA [None]
